FAERS Safety Report 15863619 (Version 1)
Quarter: 2018Q4

REPORT INFORMATION
  Report Type: Spontaneous
  Country: US (occurrence: US)
  Receive Date: 20181231
  Receipt Date: 20181231
  Transmission Date: 20190205
  Serious: Yes (Life-Threatening)
  Sender: FDA-Public Use
  Company Number: None

PATIENT
  Age: 69 Year
  Sex: Male
  Weight: 61.1 kg

DRUGS (1)
  1. MORPHINE [Suspect]
     Active Substance: MORPHINE
     Indication: PAIN
     Route: 048
     Dates: start: 20180929, end: 20180930

REACTIONS (4)
  - Respiratory depression [None]
  - Hypercapnia [None]
  - Respiratory failure [None]
  - Mental status changes [None]

NARRATIVE: CASE EVENT DATE: 20180929
